FAERS Safety Report 9975129 (Version 1)
Quarter: 2014Q1

REPORT INFORMATION
  Report Type: Report from Study
  Country: US (occurrence: US)
  Receive Date: 20140306
  Receipt Date: 20140306
  Transmission Date: 20141002
  Serious: No
  Sender: FDA-Public Use
  Company Number: US-ABBVIE-13P-163-1160345-00

PATIENT
  Sex: Female

DRUGS (5)
  1. HUMIRA [Suspect]
     Indication: PSORIASIS
     Dates: start: 20130621
  2. SORIATANE [Concomitant]
     Indication: PSORIASIS
  3. HALOG [Concomitant]
     Indication: PRODUCT USED FOR UNKNOWN INDICATION
     Route: 061
  4. FLUTICASONE [Concomitant]
     Indication: PSORIASIS
     Route: 061
  5. CLOBETASOL 0.05% [Concomitant]
     Indication: PSORIASIS

REACTIONS (1)
  - Psoriasis [Not Recovered/Not Resolved]
